FAERS Safety Report 8127811-3 (Version None)
Quarter: 2012Q1

REPORT INFORMATION
  Report Type: 
  Country: None (occurrence: None)
  Receive Date: 20120210
  Receipt Date: 20120201
  Transmission Date: 20120608
  Serious: Yes (Hospitalization)
  Sender: FDA-Public Use
  Company Number: US-BAYER-2011-041567

PATIENT
  Age: 21 Year
  Sex: Female
  Weight: 91 kg

DRUGS (2)
  1. DROSPIRENONE AND ETHINYL ESTRADIOL [Suspect]
     Indication: CONTRACEPTION
     Dosage: UNK
     Route: 048
     Dates: start: 20021201, end: 20071101
  2. YASMIN [Suspect]
     Indication: CONTRACEPTION
     Dosage: UNK
     Route: 048
     Dates: start: 20021201, end: 20071101

REACTIONS (16)
  - ABDOMINAL DISTENSION [None]
  - DIARRHOEA [None]
  - ANXIETY [None]
  - ABDOMINAL PAIN [None]
  - SCAR [None]
  - CONSTIPATION [None]
  - CHOLECYSTITIS CHRONIC [None]
  - GALLBLADDER DISORDER [None]
  - DYSPEPSIA [None]
  - GALLBLADDER CHOLESTEROLOSIS [None]
  - PAIN [None]
  - FLATULENCE [None]
  - INJURY [None]
  - MEDICAL DIET [None]
  - MENTAL DISORDER [None]
  - DEPRESSION [None]
